FAERS Safety Report 19575474 (Version 4)
Quarter: 2021Q3

REPORT INFORMATION
  Report Type: Report from Study
  Country: None (occurrence: NL)
  Receive Date: 20210719
  Receipt Date: 20210922
  Transmission Date: 20211014
  Serious: Yes (Hospitalization)
  Sender: FDA-Public Use
  Company Number: NL-ABBVIE-21K-114-3996325-00

PATIENT
  Age: 77 Year
  Sex: Male

DRUGS (16)
  1. DUODOPA [Suspect]
     Active Substance: CARBIDOPA\LEVODOPA
     Dosage: MD: 9 ML, CD: 3.5 ML/H, ED: 3 ML
     Route: 050
     Dates: start: 2021, end: 2021
  2. SIMVASTATIN. [Concomitant]
     Active Substance: SIMVASTATIN
     Indication: PRODUCT USED FOR UNKNOWN INDICATION
     Route: 048
     Dates: start: 20210624
  3. DUODOPA [Suspect]
     Active Substance: CARBIDOPA\LEVODOPA
     Dosage: MD: 9 ML, CD: 3.4 ML/H, ED: 3 ML
     Route: 050
     Dates: start: 2021, end: 2021
  4. DUODOPA [Suspect]
     Active Substance: CARBIDOPA\LEVODOPA
     Dosage: MD: 9 ML, CD: 3.7 ML/H, ED: 3 ML?REMAINS AT 16 HOURS
     Route: 050
     Dates: start: 2021, end: 2021
  5. INSULIN ASPART SANOFI [Concomitant]
     Active Substance: INSULIN ASPART
     Indication: DIABETES MELLITUS
     Dosage: 100E/ML PEN 3 ML, 3 IU, SOLOSTAR
     Route: 058
     Dates: start: 20200624
  6. METFORMIN [Concomitant]
     Active Substance: METFORMIN HYDROCHLORIDE
     Indication: DIABETES MELLITUS
     Route: 048
     Dates: start: 20200624
  7. DUODOPA [Suspect]
     Active Substance: CARBIDOPA\LEVODOPA
     Indication: PARKINSON^S DISEASE
     Dosage: MD: 8 ML, CD: 3.4 ML/H, ED: 3 ML
     Route: 050
     Dates: start: 20210623, end: 2021
  8. ARTANE [Concomitant]
     Active Substance: TRIHEXYPHENIDYL HYDROCHLORIDE
     Indication: PARKINSON^S DISEASE
     Route: 048
     Dates: start: 20200624
  9. MADOPAR HBS [Concomitant]
     Active Substance: BENSERAZIDE HYDROCHLORIDE\LEVODOPA
     Indication: PARKINSON^S DISEASE
     Dosage: 100/25MG, 1 TIME PER DAY 2
     Route: 048
     Dates: start: 20200624
  10. DUODOPA [Suspect]
     Active Substance: CARBIDOPA\LEVODOPA
     Dosage: MD: 9 ML, CD: 3.7 ML/H, ED: 3.5 ML
     Route: 050
     Dates: start: 2021
  11. CLONAZEPAM. [Concomitant]
     Active Substance: CLONAZEPAM
     Indication: PRODUCT USED FOR UNKNOWN INDICATION
     Route: 048
     Dates: start: 20200624
  12. MACROGOL + ELECTROLYTES SANDOZ [Concomitant]
     Indication: PRODUCT USED FOR UNKNOWN INDICATION
     Dosage: 1 TIME A DAY IF NEEDED
     Route: 048
     Dates: start: 20200624
  13. TOUJEO [Concomitant]
     Active Substance: INSULIN GLARGINE
     Indication: DIABETES MELLITUS
     Dosage: 300E/ML PEN 1,5ML
     Route: 058
     Dates: start: 20200624
  14. MADOPAR [Concomitant]
     Active Substance: BENSERAZIDE HYDROCHLORIDE\LEVODOPA
     Indication: PARKINSON^S DISEASE
     Dosage: 100/25MG, 4 TIMES PER DAY 2
     Route: 048
     Dates: start: 20210624, end: 20210624
  15. NEUPRO [Concomitant]
     Active Substance: ROTIGOTINE
     Indication: PARKINSON^S DISEASE
     Route: 062
     Dates: start: 20200624
  16. PREGABALIN. [Concomitant]
     Active Substance: PREGABALIN
     Indication: PRODUCT USED FOR UNKNOWN INDICATION
     Dosage: 1 TIME PER DAY 1 AND 1 PER DAY 2
     Route: 048
     Dates: start: 20210624

REACTIONS (9)
  - On and off phenomenon [Unknown]
  - Malaise [Not Recovered/Not Resolved]
  - Fatigue [Unknown]
  - Infrequent bowel movements [Recovered/Resolved]
  - Therapeutic product effect decreased [Not Recovered/Not Resolved]
  - Peritonitis [Recovering/Resolving]
  - Hyperkinesia [Not Recovered/Not Resolved]
  - Tremor [Unknown]
  - Cognitive disorder [Not Recovered/Not Resolved]

NARRATIVE: CASE EVENT DATE: 2021
